FAERS Safety Report 5334368-9 (Version None)
Quarter: 2007Q2

REPORT INFORMATION
  Report Type: 
  Country: None (occurrence: None)
  Receive Date: 20070525
  Receipt Date: 20070518
  Transmission Date: 20071010
  Serious: Yes (Other)
  Sender: FDA-Public Use
  Company Number: PHBS2007BR06933

PATIENT
  Age: 45 Year
  Sex: Male
  Weight: 75 kg

DRUGS (4)
  1. TRILEPTAL [Suspect]
     Indication: LABYRINTHITIS
     Dosage: 300 MG, Q12H
     Route: 048
     Dates: start: 20070414, end: 20070101
  2. SERTRALINE HYDROCHLORIDE [Concomitant]
     Indication: DEPRESSION
     Dosage: 50 MG, QD
     Route: 048
     Dates: start: 20070415
  3. PLASIL [Suspect]
  4. RIVOTRIL [Concomitant]
     Indication: LABYRINTHITIS

REACTIONS (12)
  - ANXIETY [None]
  - CHILLS [None]
  - DIZZINESS [None]
  - FEELING ABNORMAL [None]
  - HYPOACUSIS [None]
  - HYPOAESTHESIA [None]
  - MALAISE [None]
  - OCULAR DISCOMFORT [None]
  - RETCHING [None]
  - TINNITUS [None]
  - VISION BLURRED [None]
  - VISUAL DISTURBANCE [None]
